FAERS Safety Report 21701627 (Version 2)
Quarter: 2023Q1

REPORT INFORMATION
  Report Type: Report from Study
  Country: US (occurrence: US)
  Receive Date: 20221208
  Receipt Date: 20230321
  Transmission Date: 20230418
  Serious: Yes (Hospitalization)
  Sender: FDA-Public Use
  Company Number: US-ABBVIE-4228591

PATIENT
  Age: 60 Year
  Sex: Male

DRUGS (1)
  1. IMBRUVICA [Suspect]
     Active Substance: IBRUTINIB
     Indication: B-cell lymphoma
     Dosage: FORM STRENGTH: 420 MG
     Route: 048
     Dates: start: 20191111

REACTIONS (4)
  - Pneumonia [Unknown]
  - Memory impairment [Unknown]
  - Cardiac disorder [Unknown]
  - Positive airway pressure therapy [Unknown]

NARRATIVE: CASE EVENT DATE: 20230101
